FAERS Safety Report 20509305 (Version 32)
Quarter: 2023Q1

REPORT INFORMATION
  Report Type: Report from Study
  Country: AU (occurrence: AU)
  Receive Date: 20220223
  Receipt Date: 20230321
  Transmission Date: 20230418
  Serious: Yes (Hospitalization, Other)
  Sender: FDA-Public Use
  Company Number: AU-AMGEN INC.-AUSCT2022029528

PATIENT
  Age: 9 Year
  Sex: Male

DRUGS (26)
  1. CARFILZOMIB [Suspect]
     Active Substance: CARFILZOMIB
     Indication: Acute lymphocytic leukaemia
     Dosage: 62 MILLIGRAM
     Route: 042
     Dates: start: 20211213
  2. CARFILZOMIB [Suspect]
     Active Substance: CARFILZOMIB
     Dosage: UNK
     Route: 040
     Dates: start: 20220203
  3. CARFILZOMIB [Suspect]
     Active Substance: CARFILZOMIB
     Dosage: UNK
     Route: 040
     Dates: start: 20220208
  4. CARFILZOMIB [Suspect]
     Active Substance: CARFILZOMIB
     Dosage: UNK
     Route: 040
     Dates: start: 20220209
  5. PEG/L-ASPARAGINASE [Suspect]
     Active Substance: PEGASPARGASE
     Indication: Acute lymphocytic leukaemia
     Dosage: 1087.5 UNK
     Route: 065
     Dates: start: 20220208
  6. SULFAMETHOXAZOLE\TRIMETHOPRIM [Concomitant]
     Active Substance: SULFAMETHOXAZOLE\TRIMETHOPRIM
     Dosage: 1 UNK
     Route: 048
     Dates: start: 20211218, end: 20220524
  7. ONDANSETRON [Concomitant]
     Active Substance: ONDANSETRON
     Dosage: 4 MILLIGRAM
     Route: 048
     Dates: start: 20211208
  8. OXYCODONE HYDROCHLORIDE [Concomitant]
     Active Substance: OXYCODONE HYDROCHLORIDE
     Dosage: 5 MILLIGRAM
     Route: 048
     Dates: start: 20211212
  9. CYTARABINE [Concomitant]
     Active Substance: CYTARABINE
     Indication: Acute lymphocytic leukaemia
     Dosage: 30 MILLIGRAM
     Dates: start: 20220131, end: 20220215
  10. CYCLOPHOSPHAMIDE [Concomitant]
     Active Substance: CYCLOPHOSPHAMIDE
     Indication: Acute lymphocytic leukaemia
     Dosage: 1090 MILLIGRAM
     Dates: start: 20220125
  11. METHOTREXATE [Concomitant]
     Active Substance: METHOTREXATE
     Indication: Acute lymphocytic leukaemia
     Dosage: 15 MILLIGRAM
     Dates: start: 20220131, end: 20220215
  12. VINCRISTINE [Concomitant]
     Active Substance: VINCRISTINE
     Indication: Acute lymphocytic leukaemia
     Dosage: 1.6 MILLIGRAM
     Dates: start: 20220208
  13. Curasept [Concomitant]
     Dosage: 0.5 UNK
     Route: 061
     Dates: start: 20211215
  14. ZINC OXIDE [Concomitant]
     Active Substance: ZINC OXIDE
     Dosage: 75 GRAM
     Route: 061
     Dates: start: 20211215
  15. METOCLOPRAMIDE [Concomitant]
     Active Substance: METOCLOPRAMIDE
     Dosage: 5 MILLIGRAM
     Route: 048
     Dates: start: 20211215
  16. DOCUSATE [Concomitant]
     Active Substance: DOCUSATE
     Dosage: 50 MILLIGRAM
     Route: 048
     Dates: start: 20211215
  17. CYCLIZINE [Concomitant]
     Active Substance: CYCLIZINE
     Dosage: UNK
     Route: 042
     Dates: start: 20211214
  18. GLUCOSE;POTASSIUM CHLORIDE;SODIUM CHLORIDE [Concomitant]
     Dosage: 136.25 UNK
     Route: 042
     Dates: start: 20220125, end: 20220209
  19. MERCAPTOPURINE [Concomitant]
     Active Substance: MERCAPTOPURINE
     Dosage: 50-75 MILLIGRAM
     Dates: start: 20220131, end: 20220213
  20. PROPOFOL [Concomitant]
     Active Substance: PROPOFOL
     Dosage: 3.4 MILLIGRAM
     Route: 042
     Dates: start: 20211211, end: 20220302
  21. Bupivacaine and adrenaline [Concomitant]
     Dosage: 2 MILLILITER
     Route: 050
     Dates: start: 20211211
  22. GRANISETRON [Concomitant]
     Active Substance: GRANISETRON
     Dosage: 1 MILLIGRAM
     Route: 042
     Dates: start: 20211211
  23. BACTERIAL [Concomitant]
     Dosage: UNK
  24. BACTERIAL [Concomitant]
     Dosage: UNK
  25. BACTERIAL [Concomitant]
     Dosage: UNK
  26. DEXAMETHASONE [Concomitant]
     Active Substance: DEXAMETHASONE
     Dosage: 3.28 MILLIGRAM
     Route: 042
     Dates: start: 20220131, end: 20220209

REACTIONS (5)
  - Pancreatitis acute [Not Recovered/Not Resolved]
  - Febrile neutropenia [Recovered/Resolved]
  - Neutropenic colitis [Recovered/Resolved]
  - Pleural effusion [Recovered/Resolved]
  - Bronchopulmonary aspergillosis [Recovered/Resolved]

NARRATIVE: CASE EVENT DATE: 20220202
